FAERS Safety Report 9799627 (Version 1)
Quarter: 2014Q1

REPORT INFORMATION
  Report Type: Spontaneous
  Country: US (occurrence: None)
  Receive Date: 20140103
  Receipt Date: 20140103
  Transmission Date: 20141002
  Serious: No
  Sender: FDA-Public Use
  Company Number: None

PATIENT
  Sex: Female

DRUGS (1)
  1. TECFIDERA 240MG BIOGEN IDEC [Suspect]
     Indication: MULTIPLE SCLEROSIS
     Route: 048
     Dates: start: 20131215, end: 20131216

REACTIONS (5)
  - Urticaria [None]
  - Swollen tongue [None]
  - Erythema [None]
  - Hepatic enzyme increased [None]
  - Flushing [None]
